FAERS Safety Report 13351052 (Version 3)
Quarter: 2017Q3

REPORT INFORMATION
  Report Type: Spontaneous
  Country: US (occurrence: US)
  Receive Date: 20170320
  Receipt Date: 20170720
  Transmission Date: 20171127
  Serious: No
  Sender: FDA-Public Use
  Company Number: US-PFIZER INC-2017113221

PATIENT
  Age: 62 Year
  Sex: Female
  Weight: 113.38 kg

DRUGS (8)
  1. GABAPENTIN. [Concomitant]
     Active Substance: GABAPENTIN
     Dosage: 300 MG, 1X/DAY (1 MORNING)
  2. CALCIUM 600+D3 [Concomitant]
     Active Substance: CALCIUM CARBONATE\VITAMIN D
     Dosage: UNK (CALCIUM 600 +D3 2 MORNING)
  3. XELJANZ XR [Suspect]
     Active Substance: TOFACITINIB CITRATE
     Indication: RHEUMATOID ARTHRITIS
     Dosage: 11 MG, DAILY
     Route: 048
     Dates: start: 201609
  4. FISH OIL [Concomitant]
     Active Substance: FISH OIL
     Dosage: 1000 MG, 1X/DAY (1 MORNING)
  5. XELJANZ XR [Suspect]
     Active Substance: TOFACITINIB CITRATE
     Dosage: 11 MG, 1X/DAY
     Dates: start: 20170103
  6. ASPIRIN. [Concomitant]
     Active Substance: ASPIRIN
     Dosage: 81 MG, 1X/DAY (1 MORNING)
  7. ATENOLOL W/CHLORTALIDONE [Concomitant]
     Active Substance: ATENOLOL\CHLORTHALIDONE
     Dosage: UNK, 1X/DAY [ATENOLOL 50 MG]/ [CHLORTALIDONE 25 MG]
  8. CALCITROL [Concomitant]
     Active Substance: CALCITRIOL
     Dosage: 2 DF, 1X/DAY [CALCITROL 0.25 2 MORNING]

REACTIONS (6)
  - Influenza [Recovered/Resolved]
  - Peripheral swelling [Not Recovered/Not Resolved]
  - Urinary tract infection [Recovered/Resolved]
  - Fungal infection [Recovered/Resolved]
  - Pharyngitis streptococcal [Recovered/Resolved]
  - Arthralgia [Recovered/Resolved]

NARRATIVE: CASE EVENT DATE: 201702
